FAERS Safety Report 17677198 (Version 24)
Quarter: 2021Q3

REPORT INFORMATION
  Report Type: Report from Study
  Country: IT (occurrence: IT)
  Receive Date: 20200416
  Receipt Date: 20210917
  Transmission Date: 20211014
  Serious: Yes (Other)
  Sender: FDA-Public Use
  Company Number: IT-MYLANLABS-2020M1038425

PATIENT
  Age: 73 Year
  Sex: Male
  Weight: 114 kg

DRUGS (128)
  1. ACETYLSALICYLIC ACID [Suspect]
     Active Substance: ASPIRIN
     Dosage: UNK
     Route: 007
  2. ATENOLOL. [Suspect]
     Active Substance: ATENOLOL
     Indication: PRODUCT USED FOR UNKNOWN INDICATION
     Dosage: 100 MILLIGRAM
     Route: 048
  3. PERINDOPRIL MYLAN [Suspect]
     Active Substance: PERINDOPRIL ERBUMINE
     Indication: PRODUCT USED FOR UNKNOWN INDICATION
     Dosage: 4 MILLIGRAM
     Route: 065
  4. CALCITRIOLO DOC [Suspect]
     Active Substance: CALCITRIOL
     Dosage: UNK
     Route: 048
  5. CALCITRIOLO DOC [Suspect]
     Active Substance: CALCITRIOL
     Dosage: UNK
     Route: 048
  6. CALCITRIOLO DOC [Suspect]
     Active Substance: CALCITRIOL
     Dosage: UNK
     Route: 048
  7. CALCITRIOLO DOC [Suspect]
     Active Substance: CALCITRIOL
     Dosage: UNK
     Route: 048
  8. CALCITRIOLO DOC [Suspect]
     Active Substance: CALCITRIOL
     Dosage: 3 DOSAGE FORM
     Route: 048
  9. NORVASC [Suspect]
     Active Substance: AMLODIPINE BESYLATE
     Dosage: UNK
     Route: 065
  10. ELIQUIS [Suspect]
     Active Substance: APIXABAN
     Dosage: 10 MILLIGRAM, QD(LAST DOSE 27/FEB/2020)
     Route: 048
     Dates: start: 20141031, end: 20200227
  11. ALLOPURINOL. [Suspect]
     Active Substance: ALLOPURINOL
     Dosage: 100 MILLIGRAM
     Route: 048
  12. ALLOPURINOL. [Suspect]
     Active Substance: ALLOPURINOL
     Dosage: 100 MILLIGRAM
     Route: 048
  13. ALLOPURINOL. [Suspect]
     Active Substance: ALLOPURINOL
     Dosage: 100 MILLIGRAM
     Route: 048
  14. ASPIRIN                            /00002701/ [Suspect]
     Active Substance: ASPIRIN
     Indication: PRODUCT USED FOR UNKNOWN INDICATION
     Dosage: 100 MILLIGRAM
     Route: 007
  15. FUROSEMIDE. [Suspect]
     Active Substance: FUROSEMIDE
     Indication: PRODUCT USED FOR UNKNOWN INDICATION
     Dosage: UNK
     Route: 065
  16. ACETYLSALICYLIC ACID [Suspect]
     Active Substance: ASPIRIN
     Indication: PRODUCT USED FOR UNKNOWN INDICATION
     Dosage: 100 MILLIGRAM
     Route: 007
  17. ACETYLSALICYLIC ACID [Suspect]
     Active Substance: ASPIRIN
     Dosage: 100 MILLIGRAM
     Route: 065
  18. CALCITRIOLO DOC [Suspect]
     Active Substance: CALCITRIOL
     Dosage: UNK
     Route: 048
  19. CALCITRIOLO DOC [Suspect]
     Active Substance: CALCITRIOL
     Dosage: 0.25 MILLIGRAM
     Route: 048
  20. ROCALTROL [Suspect]
     Active Substance: CALCITRIOL
     Dosage: 0.25 MILLIGRAM
     Route: 048
  21. ROCALTROL [Suspect]
     Active Substance: CALCITRIOL
     Dosage: 0.25 MILLIGRAM
     Route: 048
  22. ELIQUIS [Suspect]
     Active Substance: APIXABAN
     Indication: ATRIAL FIBRILLATION
     Dosage: 10 MILLIGRAM, QD(LAST DOSE 27/FEB/2020)
     Route: 048
     Dates: start: 20141031, end: 20200227
  23. PERINDOPRIL ALMUS [Suspect]
     Active Substance: PERINDOPRIL
     Indication: PRODUCT USED FOR UNKNOWN INDICATION
     Dosage: 4 MILLIGRAM
     Route: 065
  24. PERINDOPRIL ALMUS [Suspect]
     Active Substance: PERINDOPRIL
     Dosage: 4 MILLIGRAM
     Route: 065
  25. ALLOPURINOL. [Suspect]
     Active Substance: ALLOPURINOL
     Dosage: 100 MILLIGRAM
     Route: 048
  26. ALLOPURINOL. [Suspect]
     Active Substance: ALLOPURINOL
     Dosage: 100 MILLIGRAM
     Route: 048
  27. ASPIRIN                            /00002701/ [Suspect]
     Active Substance: ASPIRIN
     Dosage: 100 MILLIGRAM
     Route: 007
  28. PERINDOPRIL [Suspect]
     Active Substance: PERINDOPRIL
     Indication: PRODUCT USED FOR UNKNOWN INDICATION
     Dosage: 4 MILLIGRAM
  29. ACETYLSALICYLIC ACID [Suspect]
     Active Substance: ASPIRIN
     Indication: PRODUCT USED FOR UNKNOWN INDICATION
     Dosage: 100 MILLIGRAM
     Route: 065
  30. ACETYLSALICYLIC ACID [Suspect]
     Active Substance: ASPIRIN
     Dosage: UNK
     Route: 065
  31. ACETYLSALICYLIC ACID [Suspect]
     Active Substance: ASPIRIN
     Indication: PRODUCT USED FOR UNKNOWN INDICATION
     Dosage: 100 MILLIGRAM
  32. LANSOPRAZOLE. [Suspect]
     Active Substance: LANSOPRAZOLE
     Dosage: 15 MILLIGRAM
     Route: 065
  33. CALCITRIOLO DOC [Suspect]
     Active Substance: CALCITRIOL
     Dosage: 3 DOSAGE FORM
     Route: 048
  34. CALCITRIOLO DOC [Suspect]
     Active Substance: CALCITRIOL
     Dosage: 0.25 MILLIGRAM
     Route: 048
  35. CALCITRIOLO DOC [Suspect]
     Active Substance: CALCITRIOL
     Dosage: UNK
     Route: 048
  36. CALCITRIOLO DOC [Suspect]
     Active Substance: CALCITRIOL
     Dosage: UNK
     Route: 048
  37. CALCITRIOLO DOC [Suspect]
     Active Substance: CALCITRIOL
     Dosage: UNK
     Route: 048
  38. CALCITRIOLO DOC [Suspect]
     Active Substance: CALCITRIOL
     Dosage: UNK
     Route: 048
  39. CALCITRIOLO DOC [Suspect]
     Active Substance: CALCITRIOL
     Dosage: 0.25 MILLIGRAM
     Route: 048
  40. CALCITRIOLO DOC [Suspect]
     Active Substance: CALCITRIOL
     Dosage: 3 DOSAGE FORM
     Route: 048
  41. ROCALTROL [Suspect]
     Active Substance: CALCITRIOL
     Dosage: UNK
     Route: 048
  42. ROCALTROL [Suspect]
     Active Substance: CALCITRIOL
     Dosage: UNK
     Route: 048
  43. ELIQUIS [Suspect]
     Active Substance: APIXABAN
     Dosage: 84.4 MILLIGRAM, QD
     Route: 048
  44. TAMSULOSINA AUROBINDO [Suspect]
     Active Substance: TAMSULOSIN HYDROCHLORIDE
     Dosage: UNK
     Route: 065
  45. ALLOPURINOL. [Suspect]
     Active Substance: ALLOPURINOL
     Dosage: 100 MILLIGRAM
     Route: 048
  46. ALLOPURINOL. [Suspect]
     Active Substance: ALLOPURINOL
     Dosage: 100 MILLIGRAM
     Route: 048
  47. AMLODIPINE BESYLATE. [Suspect]
     Active Substance: AMLODIPINE BESYLATE
     Dosage: 4 MILLIGRAM
  48. ASPIRIN                            /00002701/ [Suspect]
     Active Substance: ASPIRIN
     Dosage: 4 MILLIGRAM
  49. ACETYLSALICYLIC ACID [Suspect]
     Active Substance: ASPIRIN
     Dosage: 100 MILLIGRAM
     Route: 065
  50. TAMSULOSIN [Suspect]
     Active Substance: TAMSULOSIN
     Indication: PRODUCT USED FOR UNKNOWN INDICATION
     Dosage: 0.4 MILLIGRAM
     Route: 065
  51. TAMSULOSIN [Suspect]
     Active Substance: TAMSULOSIN
     Dosage: UNK
     Route: 065
  52. LANSOPRAZOLE. [Suspect]
     Active Substance: LANSOPRAZOLE
     Indication: PRODUCT USED FOR UNKNOWN INDICATION
     Dosage: 15 MILLIGRAM
     Route: 065
  53. ALLOPURINOL TEVA [Suspect]
     Active Substance: ALLOPURINOL
     Dosage: 100 MILLIGRAM
     Route: 048
  54. ROCALTROL [Suspect]
     Active Substance: CALCITRIOL
     Dosage: UNK
     Route: 048
  55. ELIQUIS [Suspect]
     Active Substance: APIXABAN
     Indication: CEREBROVASCULAR ACCIDENT PROPHYLAXIS
     Dosage: 84.4 MILLIGRAM, QD
     Route: 048
  56. TAMSULOSINA AUROBINDO [Suspect]
     Active Substance: TAMSULOSIN HYDROCHLORIDE
     Dosage: UNK
     Route: 065
  57. PERINDOPRIL ALMUS [Suspect]
     Active Substance: PERINDOPRIL
     Dosage: 4 MILLIGRAM
     Route: 065
  58. PERINDOPRIL ALMUS [Suspect]
     Active Substance: PERINDOPRIL
     Dosage: 4 MILLIGRAM
     Route: 065
  59. ALLOPURINOL. [Suspect]
     Active Substance: ALLOPURINOL
     Indication: PRODUCT USED FOR UNKNOWN INDICATION
     Dosage: 100 MILLIGRAM
     Route: 048
  60. ACETYLSALICYLIC ACID [Suspect]
     Active Substance: ASPIRIN
     Dosage: 100 MILLIGRAM
     Route: 007
  61. ACETYLSALICYLIC ACID [Suspect]
     Active Substance: ASPIRIN
     Dosage: 100 MILLIGRAM
     Route: 065
  62. ACETYLSALICYLIC ACID [Suspect]
     Active Substance: ASPIRIN
     Indication: PRODUCT USED FOR UNKNOWN INDICATION
     Dosage: 100 MILLIGRAM
     Route: 065
  63. PERINDOPRIL MYLAN [Suspect]
     Active Substance: PERINDOPRIL ERBUMINE
     Dosage: 4 MILLIGRAM
     Route: 065
  64. CALCITRIOLO DOC [Suspect]
     Active Substance: CALCITRIOL
     Dosage: UNK
     Route: 048
  65. CALCITRIOLO DOC [Suspect]
     Active Substance: CALCITRIOL
     Dosage: 0.25 MILLIGRAM
     Route: 048
  66. CALCITRIOLO DOC [Suspect]
     Active Substance: CALCITRIOL
     Dosage: UNK
     Route: 048
  67. CALCITRIOLO DOC [Suspect]
     Active Substance: CALCITRIOL
     Dosage: UNK
     Route: 048
  68. ALLOPURINOL TEVA [Suspect]
     Active Substance: ALLOPURINOL
     Indication: PRODUCT USED FOR UNKNOWN INDICATION
     Dosage: 100 MILLIGRAM
     Route: 048
  69. NORVASC [Suspect]
     Active Substance: AMLODIPINE BESYLATE
     Dosage: 4 MILLIGRAM
     Route: 065
  70. ROCALTROL [Suspect]
     Active Substance: CALCITRIOL
     Dosage: UNK
     Route: 048
  71. LASIX [Suspect]
     Active Substance: FUROSEMIDE
     Dosage: UNK
     Route: 048
  72. ELIQUIS [Suspect]
     Active Substance: APIXABAN
     Indication: PROPHYLAXIS
     Dosage: 90 MILLIGRAM (90.0MG UNKNOWN  )
     Route: 048
  73. ELIQUIS [Suspect]
     Active Substance: APIXABAN
     Dosage: 10 MILLIGRAM, QD(LAST DOSE 27/FEB/2020)
     Route: 048
     Dates: start: 20141031, end: 20200227
  74. ALLOPURINOL. [Suspect]
     Active Substance: ALLOPURINOL
     Dosage: 100 MILLIGRAM
     Route: 048
  75. ALLOPURINOL. [Suspect]
     Active Substance: ALLOPURINOL
     Dosage: 100 MILLIGRAM
     Route: 048
  76. AMLODIPINE BESYLATE. [Suspect]
     Active Substance: AMLODIPINE BESYLATE
     Dosage: UNK
  77. ASPIRIN                            /00002701/ [Suspect]
     Active Substance: ASPIRIN
     Dosage: 100 MILLIGRAM
     Route: 007
  78. ACETYLSALICYLIC ACID [Suspect]
     Active Substance: ASPIRIN
     Dosage: 100 MILLIGRAM
     Route: 065
  79. ACETYLSALICYLIC ACID [Suspect]
     Active Substance: ASPIRIN
     Dosage: UNK
     Route: 065
  80. ACETYLSALICYLIC ACID [Suspect]
     Active Substance: ASPIRIN
     Indication: PRODUCT USED FOR UNKNOWN INDICATION
     Dosage: 100 MILLIGRAM
     Route: 065
  81. ACETYLSALICYLIC ACID [Suspect]
     Active Substance: ASPIRIN
     Indication: PRODUCT USED FOR UNKNOWN INDICATION
     Dosage: UNK
     Route: 007
  82. LANSOPRAZOLE. [Suspect]
     Active Substance: LANSOPRAZOLE
     Dosage: UNK
     Route: 065
  83. CALCITRIOLO DOC [Suspect]
     Active Substance: CALCITRIOL
     Dosage: UNK
     Route: 048
  84. CALCITRIOLO DOC [Suspect]
     Active Substance: CALCITRIOL
     Dosage: UNK
     Route: 048
  85. ALLOPURINOL TEVA [Suspect]
     Active Substance: ALLOPURINOL
     Dosage: 100 MILLIGRAM
     Route: 048
  86. ALLOPURINOL TEVA [Suspect]
     Active Substance: ALLOPURINOL
     Dosage: 100 MILLIGRAM
     Route: 048
  87. NORVASC [Suspect]
     Active Substance: AMLODIPINE BESYLATE
     Indication: PRODUCT USED FOR UNKNOWN INDICATION
     Dosage: UNK
     Route: 065
  88. ROCALTROL [Suspect]
     Active Substance: CALCITRIOL
     Dosage: 3 DOSAGE FORM
     Route: 048
  89. ROCALTROL [Suspect]
     Active Substance: CALCITRIOL
     Dosage: UNK
     Route: 048
  90. ROCALTROL [Suspect]
     Active Substance: CALCITRIOL
     Dosage: 0.25 MILLIGRAM
     Route: 048
  91. ROCALTROL [Suspect]
     Active Substance: CALCITRIOL
     Dosage: 0.25 MILLIGRAM
     Route: 048
  92. ELIQUIS [Suspect]
     Active Substance: APIXABAN
     Dosage: 84.4 MILLIGRAM, QD
     Route: 048
  93. TAMSULOSINA AUROBINDO [Suspect]
     Active Substance: TAMSULOSIN HYDROCHLORIDE
     Indication: PRODUCT USED FOR UNKNOWN INDICATION
     Dosage: 0.4 MILLIGRAM
     Route: 065
  94. PERINDOPRIL ALMUS [Suspect]
     Active Substance: PERINDOPRIL
     Dosage: 4 MILLIGRAM
     Route: 065
  95. AMLODIPINE BESYLATE. [Suspect]
     Active Substance: AMLODIPINE BESYLATE
     Indication: PRODUCT USED FOR UNKNOWN INDICATION
     Dosage: UNK
  96. ELIQUIS [Suspect]
     Active Substance: APIXABAN
     Indication: CEREBROVASCULAR ACCIDENT PROPHYLAXIS
     Dosage: 84.4 MILLIGRAM
     Route: 048
  97. ACETYLSALICYLIC ACID [Suspect]
     Active Substance: ASPIRIN
     Indication: PRODUCT USED FOR UNKNOWN INDICATION
     Dosage: 100 MILLIGRAM
     Route: 065
  98. PERINDOPRIL MYLAN [Suspect]
     Active Substance: PERINDOPRIL ERBUMINE
     Dosage: UNK
  99. CALCITRIOLO DOC [Suspect]
     Active Substance: CALCITRIOL
     Indication: PRODUCT USED FOR UNKNOWN INDICATION
     Dosage: 3 DOSAGE FORM
     Route: 048
  100. CALCITRIOLO DOC [Suspect]
     Active Substance: CALCITRIOL
     Dosage: UNK
     Route: 048
  101. ALLOPURINOL TEVA [Suspect]
     Active Substance: ALLOPURINOL
     Dosage: 100 MILLIGRAM
     Route: 048
  102. ALLOPURINOL TEVA [Suspect]
     Active Substance: ALLOPURINOL
     Dosage: 100 MILLIGRAM
     Route: 048
  103. ROCALTROL [Suspect]
     Active Substance: CALCITRIOL
     Indication: PRODUCT USED FOR UNKNOWN INDICATION
     Dosage: 0.25 MILLIGRAM
     Route: 048
  104. ROCALTROL [Suspect]
     Active Substance: CALCITRIOL
     Dosage: 0.25 MILLIGRAM
     Route: 048
  105. ROCALTROL [Suspect]
     Active Substance: CALCITRIOL
     Dosage: UNK
     Route: 048
  106. LASIX [Suspect]
     Active Substance: FUROSEMIDE
     Indication: PRODUCT USED FOR UNKNOWN INDICATION
     Dosage: 25 MILLIGRAM
     Route: 048
  107. ELIQUIS [Suspect]
     Active Substance: APIXABAN
     Dosage: 84.4 MILLIGRAM, QD
     Route: 048
  108. PERINDOPRIL ALMUS [Suspect]
     Active Substance: PERINDOPRIL
     Dosage: UNK
     Route: 065
  109. CARDIOASPIRIN [Suspect]
     Active Substance: ASPIRIN
     Indication: PRODUCT USED FOR UNKNOWN INDICATION
     Dosage: 100 MILLIGRAM
     Route: 065
  110. ELIQUIS [Suspect]
     Active Substance: APIXABAN
     Indication: ATRIAL FIBRILLATION
     Dosage: 10 MILLIGRAM, QD
     Route: 048
     Dates: start: 20141031, end: 20200227
  111. ASPIRIN                            /00002701/ [Suspect]
     Active Substance: ASPIRIN
     Dosage: 100 MILLIGRAM
     Route: 007
  112. ATENOLOL. [Suspect]
     Active Substance: ATENOLOL
     Dosage: 100 MILLIGRAM
     Route: 048
  113. ATENOLOL. [Suspect]
     Active Substance: ATENOLOL
     Dosage: 100 MILLIGRAM
     Route: 048
  114. TAMSULOSIN [Suspect]
     Active Substance: TAMSULOSIN
     Dosage: UNK
     Route: 065
  115. CALCITRIOLO DOC [Suspect]
     Active Substance: CALCITRIOL
     Dosage: UNK
     Route: 048
  116. CALCITRIOLO DOC [Suspect]
     Active Substance: CALCITRIOL
     Dosage: 0.25 MILLIGRAM
     Route: 048
  117. CALCITRIOLO DOC [Suspect]
     Active Substance: CALCITRIOL
     Dosage: UNK
     Route: 048
  118. CALCITRIOLO DOC [Suspect]
     Active Substance: CALCITRIOL
     Dosage: 3 DOSAGE FORM
     Route: 048
  119. ALLOPURINOL TEVA [Suspect]
     Active Substance: ALLOPURINOL
     Dosage: UNK
     Route: 048
  120. NORVASC [Suspect]
     Active Substance: AMLODIPINE BESYLATE
     Dosage: UNK
     Route: 065
  121. ROCALTROL [Suspect]
     Active Substance: CALCITRIOL
     Dosage: 0.25 MILLIGRAM
     Route: 048
  122. ROCALTROL [Suspect]
     Active Substance: CALCITRIOL
     Dosage: UNK
     Route: 048
  123. ROCALTROL [Suspect]
     Active Substance: CALCITRIOL
     Dosage: UNK
     Route: 048
  124. ROCALTROL [Suspect]
     Active Substance: CALCITRIOL
     Dosage: UNK
     Route: 048
  125. ROCALTROL [Suspect]
     Active Substance: CALCITRIOL
     Dosage: 0.25 MILLIGRAM
     Route: 048
  126. ALLOPURINOL. [Suspect]
     Active Substance: ALLOPURINOL
     Dosage: 100 MILLIGRAM
     Route: 048
  127. AMLODIPINE BESYLATE. [Suspect]
     Active Substance: AMLODIPINE BESYLATE
     Dosage: UNK
  128. FUROSEMIDE. [Suspect]
     Active Substance: FUROSEMIDE
     Dosage: 25 MILLIGRAM (25.0MG UNKNOWN  )
     Route: 048

REACTIONS (5)
  - Circumstance or information capable of leading to medication error [Unknown]
  - Off label use [Recovered/Resolved]
  - Prescribed overdose [Recovered/Resolved]
  - Intentional product misuse [Unknown]
  - Haematochezia [Recovering/Resolving]

NARRATIVE: CASE EVENT DATE: 20141108
